FAERS Safety Report 24307501 (Version 1)
Quarter: 2024Q3

REPORT INFORMATION
  Report Type: Spontaneous
  Country: US (occurrence: None)
  Receive Date: 20240911
  Receipt Date: 20240911
  Transmission Date: 20241016
  Serious: No
  Sender: Public
  Company Number: None

PATIENT
  Sex: Female

DRUGS (1)
  1. OCTREOTIDE [Suspect]
     Active Substance: OCTREOTIDE\OCTREOTIDE ACETATE
     Indication: Benign pancreatic neoplasm
     Dosage: FREQUENCY : 3 TIMES A DAY;?
     Route: 042
     Dates: start: 202402

REACTIONS (1)
  - Sepsis [None]
